FAERS Safety Report 9656281 (Version 3)
Quarter: 2013Q4

REPORT INFORMATION
  Report Type: Spontaneous
  Country: US (occurrence: US)
  Receive Date: 20131030
  Receipt Date: 20131115
  Transmission Date: 20140711
  Serious: No
  Sender: FDA-Public Use
  Company Number: US-PFIZER INC-2013306252

PATIENT
  Age: 66 Year
  Sex: Female
  Weight: 61.2 kg

DRUGS (3)
  1. ESTRING [Suspect]
     Indication: VULVOVAGINAL DRYNESS
     Dosage: 2 MG, EVERY 3 MONTHS
     Route: 067
     Dates: start: 20131024
  2. ESTRING [Suspect]
     Indication: ATROPHIC VULVOVAGINITIS
  3. ESTRING [Suspect]
     Indication: POLLAKIURIA

REACTIONS (1)
  - Abdominal pain [Not Recovered/Not Resolved]
